FAERS Safety Report 4636047-X (Version None)
Quarter: 2005Q2

REPORT INFORMATION
  Report Type: 
  Country: None (occurrence: None)
  Receive Date: 20050325
  Receipt Date: 20041220
  Transmission Date: 20051028
  Serious: Yes (Other)
  Sender: FDA-Public Use
  Company Number: USA041286580

PATIENT
  Age: 69 Year
  Sex: Female
  Weight: 45 kg

DRUGS (4)
  1. FORTEO [Suspect]
     Indication: OSTEOPOROSIS
     Dosage: 20 UG
     Dates: start: 20041012
  2. NEURONTIN [Concomitant]
     Route: 048
  3. TYLENOL [Concomitant]
  4. DICLOFENAC SODIUM W/MISOPROSTOL [Concomitant]

REACTIONS (8)
  - FEELING ABNORMAL [None]
  - MEDICATION ERROR [None]
  - MUSCLE SPASMS [None]
  - OVERDOSE [None]
  - PAIN IN EXTREMITY [None]
  - SENSATION OF HEAVINESS [None]
  - SYNCOPE [None]
  - VOMITING [None]
